FAERS Safety Report 9733053 (Version 2)
Quarter: 2013Q4

REPORT INFORMATION
  Report Type: Spontaneous
  Country: US (occurrence: US)
  Receive Date: 20131204
  Receipt Date: 20131204
  Transmission Date: 20140711
  Serious: Yes (Hospitalization)
  Sender: FDA-Public Use
  Company Number: US-GILEAD-2009-0022586

PATIENT
  Sex: Male
  Weight: 145.15 kg

DRUGS (18)
  1. LETAIRIS [Suspect]
     Indication: PULMONARY ARTERIAL HYPERTENSION
     Route: 048
     Dates: start: 20080806
  2. REVATIO [Concomitant]
  3. TRANDOLAPRIL [Concomitant]
  4. COUMADIN [Concomitant]
  5. LASIX [Concomitant]
  6. ALBUTEROL [Concomitant]
  7. PREDNISONE [Concomitant]
  8. NEURONTIN [Concomitant]
  9. SYMBICORT [Concomitant]
  10. VICODIN [Concomitant]
  11. CELEXA [Concomitant]
  12. WELCHOL [Concomitant]
  13. GLUCOTROL XL [Concomitant]
  14. REQUIP [Concomitant]
  15. PEPCID [Concomitant]
  16. AMBIEN [Concomitant]
  17. IMODIUM AD [Concomitant]
  18. POTASSIUM [Concomitant]

REACTIONS (3)
  - Dyspnoea [Unknown]
  - Fluid overload [Unknown]
  - No therapeutic response [Unknown]
